FAERS Safety Report 7376916-3 (Version None)
Quarter: 2011Q1

REPORT INFORMATION
  Report Type: 
  Country: None (occurrence: None)
  Receive Date: 20110327
  Receipt Date: 20110323
  Transmission Date: 20110831
  Serious: No
  Sender: FDA-Public Use
  Company Number: US-BAYER-2011-025469

PATIENT

DRUGS (3)
  1. ULTRAVIST 150 [Suspect]
     Indication: COMPUTERISED TOMOGRAM
     Dosage: 100 ML, ONCE
  2. READI-CAT [Suspect]
     Indication: COMPUTERISED TOMOGRAM
     Route: 048
  3. YAZ [Concomitant]

REACTIONS (1)
  - ASTHENOPIA [None]
